FAERS Safety Report 26144001 (Version 1)
Quarter: 2025Q4

REPORT INFORMATION
  Report Type: Spontaneous
  Country: US (occurrence: US)
  Receive Date: 20251211
  Receipt Date: 20251211
  Transmission Date: 20260117
  Serious: Yes (Life-Threatening, Hospitalization, Other)
  Sender: AUROBINDO
  Company Number: US-MLMSERVICE-20251121-PI722415-00271-2

PATIENT
  Age: 48 Year
  Sex: Female

DRUGS (2)
  1. PREDNISONE [Suspect]
     Active Substance: PREDNISONE
     Indication: Prophylaxis
     Dosage: 5 MILLIGRAM
  2. METYROSINE [Concomitant]
     Active Substance: METYROSINE
     Indication: Product used for unknown indication
     Dosage: UNK
     Route: 065

REACTIONS (5)
  - Adrenal haemorrhage [Unknown]
  - Diabetic ketoacidosis [Unknown]
  - Acute myocardial infarction [Unknown]
  - Catecholamine crisis [Unknown]
  - Phaeochromocytoma crisis [Unknown]
